FAERS Safety Report 12443072 (Version 1)
Quarter: 2016Q2

REPORT INFORMATION
  Report Type: Spontaneous
  Country: US (occurrence: US)
  Receive Date: 20160607
  Receipt Date: 20160607
  Transmission Date: 20160815
  Serious: Yes (Other)
  Sender: FDA-Public Use
  Company Number: US-MDT-ADR-2016-00052

PATIENT
  Sex: Female

DRUGS (20)
  1. XENADERM [Suspect]
     Active Substance: BALSAM PERU OIL\CASTOR OIL\TRYPSIN
     Route: 061
  2. CALMOSEPTINE [Suspect]
     Active Substance: MENTHOL\ZINC OXIDE
     Route: 061
  3. OMEGA-3 FATTY ACIDS FISH OIL [Suspect]
     Active Substance: FISH OIL\OMEGA-3 FATTY ACIDS
     Route: 048
  4. CALCIUM MAGNESIUM [Suspect]
     Active Substance: CALCIUM\MAGNESIUM
     Dosage: 500-250
     Route: 048
  5. METANX [Suspect]
     Active Substance: LEVOMEFOLATE CALCIUM\METHYLCOBALAMIN\PYRIDOXAL PHOSPHATE ANHYDROUS
     Route: 048
  6. METHYL PRO [Suspect]
     Active Substance: LEVOMEFOLIC ACID
  7. CYMBALTA [Suspect]
     Active Substance: DULOXETINE HYDROCHLORIDE
     Route: 048
  8. MAGNESIUM [Suspect]
     Active Substance: MAGNESIUM
     Route: 048
  9. DEXEDRINE [Suspect]
     Active Substance: DEXTROAMPHETAMINE SULFATE
     Route: 048
  10. COMPOUND MEDICATION AMINOPYRIDINE SR [Suspect]
     Active Substance: DALFAMPRIDINE
     Route: 048
  11. VITAMIN C [Suspect]
     Active Substance: ASCORBIC ACID
     Route: 048
  12. PROLOPRIM [Suspect]
     Active Substance: TRIMETHOPRIM
     Route: 048
  13. MULTIPLE VITAMIN [Suspect]
     Active Substance: VITAMINS
     Route: 048
  14. CRANBERRY. [Suspect]
     Active Substance: CRANBERRY
     Route: 048
  15. METHYPRO B COMPLEX [Suspect]
     Active Substance: LEVOMEFOLIC ACID\VITAMIN B COMPLEX
     Dosage: 5 MG BY MOUTH DAILY SUNDAY, MONDAY, THURSDAY, FRIDAY
     Route: 048
  16. VITAMIN D3 [Suspect]
     Active Substance: CHOLECALCIFEROL
     Dosage: 5000 UNIT, ONE TAB BY MOUTH DAILY
     Route: 048
  17. BACLOFEN. [Suspect]
     Active Substance: BACLOFEN
     Dosage: 1565 MCG/DAY
     Route: 037
  18. ARMOUR THYROID [Suspect]
     Active Substance: THYROID, PORCINE
     Route: 048
  19. NALTREXONE [Suspect]
     Active Substance: NALTREXONE
     Dosage: 4.5 MG CAPSULE ONE DAILY
     Route: 048
  20. PROBIOTIC [Suspect]
     Active Substance: PROBIOTICS NOS
     Dosage: CAPS ONE BY MOUTH EVERY DAY
     Route: 048

REACTIONS (6)
  - Nausea [Unknown]
  - Fatigue [Unknown]
  - Glomerular filtration rate increased [Unknown]
  - Muscular weakness [Unknown]
  - Malaise [Unknown]
  - Urinary tract infection [Unknown]
